FAERS Safety Report 12256688 (Version 1)
Quarter: 2016Q2

REPORT INFORMATION
  Report Type: Spontaneous
  Country: US (occurrence: None)
  Receive Date: 20160411
  Receipt Date: 20160411
  Transmission Date: 20160815
  Serious: Yes (Other)
  Sender: FDA-Public Use
  Company Number: None

PATIENT
  Age: 70 Year
  Sex: Male
  Weight: 78.47 kg

DRUGS (12)
  1. SONATA [Concomitant]
     Active Substance: ZALEPLON
  2. ATENOLOL. [Concomitant]
     Active Substance: ATENOLOL
  3. NAC [Concomitant]
  4. ROZEREM [Suspect]
     Active Substance: RAMELTEON
     Indication: INITIAL INSOMNIA
     Dosage: 5 TABLET(S) AT BEDTIME TAKEN BY MOUTH
     Route: 048
     Dates: start: 20160331, end: 20160405
  5. BUPROPION XL [Concomitant]
     Active Substance: BUPROPION
  6. ROZEREM [Suspect]
     Active Substance: RAMELTEON
     Indication: MIDDLE INSOMNIA
     Dosage: 5 TABLET(S) AT BEDTIME TAKEN BY MOUTH
     Route: 048
     Dates: start: 20160331, end: 20160405
  7. DOCUSATE [Concomitant]
     Active Substance: DOCUSATE
  8. TYLENOL [Concomitant]
     Active Substance: ACETAMINOPHEN
  9. WHITE KIDNEY BEAN EXTRACT [Concomitant]
  10. TRAZODONE [Concomitant]
     Active Substance: TRAZODONE HYDROCHLORIDE
  11. VIT-D [Concomitant]
  12. COFFEE [Concomitant]
     Active Substance: ARABICA COFFEE BEAN\COFFEE BEAN

REACTIONS (11)
  - Nightmare [None]
  - Disturbance in attention [None]
  - Mental disorder [None]
  - Middle insomnia [None]
  - Vertigo [None]
  - Drug interaction [None]
  - Balance disorder [None]
  - Dizziness [None]
  - Fatigue [None]
  - Somnolence [None]
  - Depression [None]

NARRATIVE: CASE EVENT DATE: 20160331
